FAERS Safety Report 8844604 (Version 1)
Quarter: 2012Q4

REPORT INFORMATION
  Report Type: 
  Country: CN (occurrence: CN)
  Receive Date: 20121017
  Receipt Date: 20121017
  Transmission Date: 20130627
  Serious: Yes (Death)
  Sender: FDA-Public Use
  Company Number: CN-JNJFOC-20121007905

PATIENT

DRUGS (14)
  1. SPORANOX [Suspect]
     Indication: PULMONARY MYCOSIS
     Dosage: on day 1 and day 2
     Route: 041
  2. SPORANOX [Suspect]
     Indication: PULMONARY MYCOSIS
     Route: 041
  3. SPORANOX [Suspect]
     Indication: CHRONIC OBSTRUCTIVE PULMONARY DISEASE
     Route: 041
  4. SPORANOX [Suspect]
     Indication: CHRONIC OBSTRUCTIVE PULMONARY DISEASE
     Dosage: on day 1 and day 2
     Route: 041
  5. KETOCONAZOLE [Suspect]
     Indication: PULMONARY MYCOSIS
     Route: 065
  6. KETOCONAZOLE [Suspect]
     Indication: CHRONIC OBSTRUCTIVE PULMONARY DISEASE
     Route: 065
  7. FLUCONAZOLE [Suspect]
     Indication: PULMONARY MYCOSIS
     Dosage: 400-800 mg/day. The therapy course was 4 to 6 weeks
     Route: 042
  8. FLUCONAZOLE [Suspect]
     Indication: CHRONIC OBSTRUCTIVE PULMONARY DISEASE
     Dosage: 400-800 mg/day. The therapy course was 4 to 6 weeks
     Route: 042
  9. FLUOROCYTOSINE [Suspect]
     Indication: PULMONARY MYCOSIS
     Route: 065
  10. FLUOROCYTOSINE [Suspect]
     Indication: CHRONIC OBSTRUCTIVE PULMONARY DISEASE
     Route: 065
  11. UNKNOWN MEDICATION [Suspect]
     Indication: PULMONARY MYCOSIS
     Route: 065
  12. UNKNOWN MEDICATION [Suspect]
     Indication: CHRONIC OBSTRUCTIVE PULMONARY DISEASE
     Route: 065
  13. FLUCONAZOLE [Suspect]
     Indication: PULMONARY MYCOSIS
     Route: 048
  14. FLUCONAZOLE [Suspect]
     Indication: CHRONIC OBSTRUCTIVE PULMONARY DISEASE
     Route: 048

REACTIONS (1)
  - Infection [Fatal]
